FAERS Safety Report 5690836-1 (Version None)
Quarter: 2008Q2

REPORT INFORMATION
  Report Type: 
  Country: None (occurrence: None)
  Receive Date: 20080401
  Receipt Date: 20080328
  Transmission Date: 20081010
  Serious: Yes (Hospitalization)
  Sender: FDA-Public Use
  Company Number: B0514703A

PATIENT
  Age: 26 Year
  Sex: Female

DRUGS (4)
  1. AUGMENTIN '125' [Suspect]
     Indication: RESPIRATORY TRACT INFECTION
     Dosage: 2G PER DAY
     Route: 048
     Dates: start: 20080309, end: 20080309
  2. FOLIC ACID [Concomitant]
     Route: 048
  3. IRON [Concomitant]
     Route: 048
  4. AMBROXOL [Concomitant]
     Route: 048

REACTIONS (2)
  - DRUG EXPOSURE DURING PREGNANCY [None]
  - TOXIC SKIN ERUPTION [None]
